FAERS Safety Report 7518004-9 (Version None)
Quarter: 2011Q2

REPORT INFORMATION
  Report Type: 
  Country: None (occurrence: None)
  Receive Date: 20110602
  Receipt Date: 20110524
  Transmission Date: 20111010
  Serious: No
  Sender: FDA-Public Use
  Company Number: US-JNJFOC-20110511689

PATIENT
  Sex: Male

DRUGS (7)
  1. HYDROCHLOROTHIAZIDE [Concomitant]
     Indication: HYPERTENSION
     Dosage: 40/12.5 MG ONCE DAILY
     Route: 048
     Dates: start: 20100501
  2. PLAVIX [Concomitant]
     Indication: STENT PLACEMENT
     Route: 048
     Dates: start: 20100501
  3. FENTANYL-100 [Suspect]
     Route: 062
     Dates: start: 20110523
  4. FENTANYL-100 [Suspect]
     Indication: LUNG NEOPLASM MALIGNANT
     Dosage: NDC: 0781-7240-55
     Route: 062
     Dates: start: 20110521
  5. FENTANYL-100 [Suspect]
     Indication: CHEST PAIN
     Dosage: NDC: 0781-7240-55
     Route: 062
     Dates: start: 20110521
  6. FENTANYL-100 [Suspect]
     Route: 062
     Dates: start: 20110523
  7. DILTIAZEM [Concomitant]
     Indication: PRODUCT USED FOR UNKNOWN INDICATION
     Dosage: 120 MG AND 60 MG
     Route: 048
     Dates: start: 20100501

REACTIONS (3)
  - VOMITING [None]
  - MALAISE [None]
  - DRUG DOSE OMISSION [None]
